FAERS Safety Report 18703193 (Version 2)
Quarter: 2021Q1

REPORT INFORMATION
  Report Type: Spontaneous
  Country: US (occurrence: US)
  Receive Date: 20210105
  Receipt Date: 20210107
  Transmission Date: 20210419
  Serious: Yes (Life-Threatening)
  Sender: FDA-Public Use
  Company Number: US-BIOMARINAP-US-2020-134127

PATIENT
  Age: 19 Year
  Sex: Female
  Weight: 27.7 kg

DRUGS (1)
  1. VIMIZIM [Suspect]
     Active Substance: ELOSULFASE ALFA
     Indication: MUCOPOLYSACCHARIDOSIS IV
     Dosage: 60 MILLIGRAM, QW
     Route: 042
     Dates: start: 20150327

REACTIONS (2)
  - COVID-19 [Recovering/Resolving]
  - Respiratory symptom [Unknown]

NARRATIVE: CASE EVENT DATE: 20201226
